FAERS Safety Report 11951078 (Version 2)
Quarter: 2016Q1

REPORT INFORMATION
  Report Type: Spontaneous
  Country: GB (occurrence: GB)
  Receive Date: 20160126
  Receipt Date: 20160127
  Transmission Date: 20160526
  Serious: Yes (Other)
  Sender: FDA-Public Use
  Company Number: GB-TEVA-603612ISR

PATIENT
  Age: 43 Year
  Sex: Female

DRUGS (6)
  1. FLUOXETINE [Interacting]
     Active Substance: FLUOXETINE HYDROCHLORIDE
     Indication: BIPOLAR DISORDER
     Route: 065
  2. CITALOPRAM [Suspect]
     Active Substance: CITALOPRAM HYDROBROMIDE
     Indication: BIPOLAR DISORDER
     Dosage: 20 MILLIGRAM DAILY;
     Route: 065
     Dates: start: 201409
  3. QUETIAPINE [Interacting]
     Active Substance: QUETIAPINE
     Indication: BIPOLAR DISORDER
     Dosage: 300 MILLIGRAM DAILY;
     Route: 065
     Dates: start: 201409
  4. DOTHIEAPIN [Interacting]
     Active Substance: DOTHIEPIN HYDROCHLORIDE
     Indication: BIPOLAR DISORDER
     Route: 065
  5. LOFEPRAMINE [Suspect]
     Active Substance: LOFEPRAMINE
     Indication: BIPOLAR DISORDER
     Route: 065
  6. ESCITALOPRAM [Interacting]
     Active Substance: ESCITALOPRAM OXALATE
     Indication: BIPOLAR DISORDER
     Route: 065

REACTIONS (2)
  - Restless legs syndrome [Not Recovered/Not Resolved]
  - Drug interaction [Unknown]
